FAERS Safety Report 16715788 (Version 1)
Quarter: 2019Q3

REPORT INFORMATION
  Report Type: Spontaneous
  Country: CN (occurrence: CN)
  Receive Date: 20190819
  Receipt Date: 20190819
  Transmission Date: 20191005
  Serious: Yes (Hospitalization, Other)
  Sender: FDA-Public Use
  Company Number: CN-PFIZER INC-2019347774

PATIENT
  Age: 73 Year
  Sex: Female
  Weight: 48 kg

DRUGS (4)
  1. DIAMICRON [Concomitant]
     Active Substance: GLICLAZIDE
     Indication: DIABETES MELLITUS
     Dosage: 80 MG, 1X/DAY
     Route: 048
     Dates: start: 20150101, end: 20190807
  2. METFORMIN [Concomitant]
     Active Substance: METFORMIN HYDROCHLORIDE
     Indication: DIABETES MELLITUS
     Dosage: 0.5 G, 2X/DAY
     Route: 048
     Dates: start: 20150101, end: 20190807
  3. NORVASC [Suspect]
     Active Substance: AMLODIPINE BESYLATE
     Indication: HYPERTENSION
     Dosage: 5 MG, 1X/DAY
     Route: 048
     Dates: start: 20190101, end: 20190807
  4. BANG TAN [Concomitant]
     Indication: HYPERTENSION
     Dosage: 40 MG, 1X/DAY
     Route: 048
     Dates: start: 20190101, end: 20190807

REACTIONS (11)
  - Mitral valve incompetence [Unknown]
  - Vertebral artery stenosis [Unknown]
  - Carotid arteriosclerosis [Unknown]
  - Cholelithiasis [Unknown]
  - Generalised oedema [Recovering/Resolving]
  - Cholecystitis [Unknown]
  - Pulmonary arterial pressure increased [Unknown]
  - Tricuspid valve incompetence [Unknown]
  - Left ventricular dysfunction [Unknown]
  - Left atrial enlargement [Unknown]
  - Aortic valve incompetence [Unknown]

NARRATIVE: CASE EVENT DATE: 20190803
